FAERS Safety Report 5317617-2 (Version None)
Quarter: 2007Q2

REPORT INFORMATION
  Report Type: 
  Country: None (occurrence: None)
  Receive Date: 20070507
  Receipt Date: 20070426
  Transmission Date: 20071010
  Serious: Yes (Hospitalization)
  Sender: FDA-Public Use
  Company Number: PHRM2007FR01361

PATIENT
  Age: 83 Year
  Sex: Female

DRUGS (9)
  1. LASIX [Concomitant]
     Dosage: 40 MG, QD
     Route: 048
     Dates: start: 20061101
  2. MIXTARD HUMAN 70/30 [Concomitant]
     Indication: DIABETES MELLITUS INSULIN-DEPENDENT
     Route: 058
  3. NISISCO [Suspect]
     Indication: HYPERTENSION
     Dosage: 1 DF, QD
     Route: 048
     Dates: end: 20061221
  4. PERINDOPRIL ERBUMINE [Suspect]
     Indication: HYPERTENSION
     Dosage: 4 MG, QD
     Route: 048
     Dates: end: 20061221
  5. ALDACTONE [Suspect]
     Indication: HYPERTENSION
     Dosage: 50 MG, BID
     Route: 048
     Dates: end: 20061221
  6. ACARBOSE [Concomitant]
     Indication: DIABETES MELLITUS
     Route: 048
  7. ASASANTIN [Concomitant]
     Route: 048
  8. ZANIDIP [Concomitant]
     Dates: end: 20061202
  9. NEBIVOLOL (TEMERIT) [Concomitant]
     Dates: end: 20061202

REACTIONS (9)
  - ASCITES [None]
  - ATRIAL FIBRILLATION [None]
  - BLOOD CREATININE INCREASED [None]
  - BUNDLE BRANCH BLOCK LEFT [None]
  - ELECTROCARDIOGRAM REPOLARISATION ABNORMALITY [None]
  - GENERAL PHYSICAL HEALTH DETERIORATION [None]
  - HAEMODIALYSIS [None]
  - HYPERKALAEMIA [None]
  - RENAL FAILURE ACUTE [None]
